FAERS Safety Report 23338338 (Version 1)
Quarter: 2023Q4

REPORT INFORMATION
  Report Type: Spontaneous
  Country: US (occurrence: None)
  Receive Date: 20231224
  Receipt Date: 20231224
  Transmission Date: 20240109
  Serious: Yes (unspecified)
  Sender: FDA-Public Use
  Company Number: None

PATIENT
  Age: 34 Year
  Sex: Female
  Weight: 62.55 kg

DRUGS (3)
  1. MOUNJARO [Suspect]
     Active Substance: TIRZEPATIDE
     Indication: Weight decreased
     Dosage: 5 INJECTIONS WEEKLY INJECTION
     Route: 058
     Dates: start: 20231116
  2. UNSPECIFIED INGREDIENT [Concomitant]
     Active Substance: UNSPECIFIED INGREDIENT
  3. VITAMINS [Concomitant]
     Active Substance: VITAMINS

REACTIONS (6)
  - Pain [None]
  - Faecaloma [None]
  - Abdominal pain upper [None]
  - Intermenstrual bleeding [None]
  - Menstrual clots [None]
  - Dysmenorrhoea [None]

NARRATIVE: CASE EVENT DATE: 20231123
